FAERS Safety Report 15406754 (Version 1)
Quarter: 2018Q3

REPORT INFORMATION
  Report Type: Spontaneous
  Country: DE (occurrence: DE)
  Receive Date: 20180920
  Receipt Date: 20180920
  Transmission Date: 20181010
  Serious: Yes (Hospitalization)
  Sender: FDA-Public Use
  Company Number: DE-PFIZER INC-2018375349

PATIENT
  Age: 79 Year
  Sex: Female
  Weight: 51 kg

DRUGS (2)
  1. EXEMESTAN ACCORD [Concomitant]
     Dosage: 0?1?0
     Route: 048
     Dates: start: 20180810
  2. IBRANCE [Suspect]
     Active Substance: PALBOCICLIB
     Indication: BREAST CANCER RECURRENT
     Dosage: 125 MG, 1X/DAY (1?0?0)
     Route: 048
     Dates: start: 20180810, end: 20180814

REACTIONS (6)
  - Restlessness [Unknown]
  - Chills [Unknown]
  - Palpitations [Unknown]
  - Nausea [Unknown]
  - Febrile convulsion [Unknown]
  - Dyspnoea [Unknown]

NARRATIVE: CASE EVENT DATE: 20180810
